FAERS Safety Report 8196448-2 (Version None)
Quarter: 2012Q1

REPORT INFORMATION
  Report Type: 
  Country: None (occurrence: None)
  Receive Date: 20120229
  Receipt Date: 20110929
  Transmission Date: 20120608
  Serious: No
  Sender: FDA-Public Use
  Company Number: US-2011-10008

PATIENT
  Age: 42 Year
  Sex: Female

DRUGS (1)
  1. SAMSCA [Suspect]
     Dosage: 30 MG MILLIGRAM(S), DAILY DOSE, ORAL
     Route: 048

REACTIONS (1)
  - DYSGEUSIA [None]
